FAERS Safety Report 10070063 (Version 1)
Quarter: 2014Q2

REPORT INFORMATION
  Report Type: Report from Study
  Country: GB (occurrence: GB)
  Receive Date: 20140410
  Receipt Date: 20140410
  Transmission Date: 20141212
  Serious: Yes (Other)
  Sender: FDA-Public Use
  Company Number: GB-VERTEX PHARMACEUTICALS INC-2014-001867

PATIENT
  Sex: Male

DRUGS (4)
  1. VX-950 (TELAPREVIR) [Suspect]
     Indication: HEPATITIS C
     Dosage: 750 MG, TID
     Route: 048
  2. RIBAVIRIN [Suspect]
     Indication: HEPATITIS C
     Dosage: UNK
     Route: 048
  3. RIBAVIRIN [Suspect]
     Dosage: 2 DF, QD
     Route: 048
     Dates: start: 20130923
  4. PEGINTERFERON ALFA [Concomitant]
     Indication: HEPATITIS C

REACTIONS (3)
  - Drug withdrawal syndrome [Recovered/Resolved]
  - Blood count abnormal [Not Recovered/Not Resolved]
  - Fatigue [Not Recovered/Not Resolved]
